FAERS Safety Report 6713520-1 (Version None)
Quarter: 2010Q2

REPORT INFORMATION
  Report Type: 
  Country: None (occurrence: None)
  Receive Date: 20100504
  Receipt Date: 20100422
  Transmission Date: 20101027
  Serious: Yes (Hospitalization)
  Sender: FDA-Public Use
  Company Number: 1000013472

PATIENT
  Age: 27 Year
  Sex: Female
  Weight: 45 kg

DRUGS (3)
  1. ESCITALOPRAM [Suspect]
     Dosage: 20 MG (20MG, 1 IN 1 D), ORAL
     Route: 048
  2. TAMIFLU [Suspect]
     Dosage: 75 MG (75MG, 1 IN 1D) ORAL
     Route: 048
  3. CLONAZEPAM [Concomitant]

REACTIONS (8)
  - AUTONOMIC NERVOUS SYSTEM IMBALANCE [None]
  - CLONUS [None]
  - DIZZINESS [None]
  - DRUG INTERACTION [None]
  - HYPERREFLEXIA [None]
  - MYDRIASIS [None]
  - SEROTONIN SYNDROME [None]
  - TREMOR [None]
